FAERS Safety Report 18279425 (Version 3)
Quarter: 2020Q4

REPORT INFORMATION
  Report Type: Spontaneous
  Country: JP (occurrence: JP)
  Receive Date: 20200917
  Receipt Date: 20201102
  Transmission Date: 20210113
  Serious: Yes (Hospitalization, Other)
  Sender: FDA-Public Use
  Company Number: NVSJ2020JP009026

PATIENT
  Age: 58 Year
  Sex: Female

DRUGS (4)
  1. COSENTYX [Suspect]
     Active Substance: SECUKINUMAB
     Dosage: 300 MG
     Route: 058
     Dates: start: 201509, end: 201910
  2. COSENTYX [Suspect]
     Active Substance: SECUKINUMAB
     Indication: PSORIASIS
     Dosage: 300 MG
     Route: 058
  3. COSENTYX [Suspect]
     Active Substance: SECUKINUMAB
     Dosage: 300 MG, EVERY 6 WEEKS
     Route: 058
  4. COSENTYX [Suspect]
     Active Substance: SECUKINUMAB
     Dosage: 300 MG
     Route: 058
     Dates: start: 201509

REACTIONS (17)
  - Pathological tooth fracture [Recovered/Resolved]
  - Fungal infection [Recovered/Resolved]
  - Paradoxical drug reaction [Recovered/Resolved]
  - Rash [Recovered/Resolved]
  - Liver function test abnormal [Unknown]
  - Arthritis [Recovered/Resolved]
  - Pustule [Unknown]
  - Pustulotic arthro-osteitis [Recovered/Resolved]
  - Musculoskeletal chest pain [Recovered/Resolved]
  - Skin exfoliation [Unknown]
  - Perioral dermatitis [Recovered/Resolved]
  - Bacterial infection [Recovered/Resolved]
  - Cellulitis [Recovered/Resolved]
  - Periodontitis [Recovered/Resolved]
  - Swelling [Unknown]
  - Palmoplantar pustulosis [Recovered/Resolved]
  - Tinea pedis [Recovering/Resolving]

NARRATIVE: CASE EVENT DATE: 201812
